FAERS Safety Report 14197887 (Version 2)
Quarter: 2018Q1

REPORT INFORMATION
  Report Type: Report from Study
  Country: US (occurrence: US)
  Receive Date: 20171117
  Receipt Date: 20180109
  Transmission Date: 20180508
  Serious: Yes (Hospitalization)
  Sender: FDA-Public Use
  Company Number: US-ROCHE-2022669

PATIENT
  Age: 84 Year
  Sex: Male

DRUGS (4)
  1. ESBRIET [Suspect]
     Active Substance: PIRFENIDONE
     Dosage: DAY 15 ONWARDS
     Route: 048
  2. ESBRIET [Suspect]
     Active Substance: PIRFENIDONE
     Dosage: DAY 8-14
     Route: 048
  3. ESBRIET [Suspect]
     Active Substance: PIRFENIDONE
     Dosage: 9 PILLS A DAY,
     Route: 048
     Dates: start: 201504
  4. ESBRIET [Suspect]
     Active Substance: PIRFENIDONE
     Indication: IDIOPATHIC PULMONARY FIBROSIS
     Dosage: DAY 1-7
     Route: 048

REACTIONS (7)
  - Contusion [Recovered/Resolved]
  - Arthropathy [Unknown]
  - Haemorrhage [Recovering/Resolving]
  - Fall [Unknown]
  - Localised infection [Unknown]
  - Rib fracture [Recovered/Resolved]
  - Laceration [Recovered/Resolved]

NARRATIVE: CASE EVENT DATE: 20171031
